FAERS Safety Report 23451602 (Version 3)
Quarter: 2024Q2

REPORT INFORMATION
  Report Type: Spontaneous
  Country: US (occurrence: US)
  Receive Date: 20240129
  Receipt Date: 20240413
  Transmission Date: 20240716
  Serious: No
  Sender: FDA-Public Use
  Company Number: US-SA-SAC20240119000668

PATIENT
  Age: 18 Year
  Sex: Female

DRUGS (2)
  1. DUPIXENT [Suspect]
     Active Substance: DUPILUMAB
     Indication: Neurodermatitis
     Dosage: 600 MG, 1X
     Route: 058
     Dates: start: 202311, end: 202311
  2. DUPIXENT [Suspect]
     Active Substance: DUPILUMAB
     Indication: Eczema
     Dosage: 300 MG, QOW
     Route: 058
     Dates: start: 2023

REACTIONS (10)
  - Endometriosis [Unknown]
  - Lacrimation increased [Unknown]
  - Condition aggravated [Unknown]
  - Eye swelling [Unknown]
  - Condition aggravated [Unknown]
  - Eye pruritus [Unknown]
  - Intra-uterine contraceptive device insertion [Unknown]
  - Eczema [Unknown]
  - Skin burning sensation [Unknown]
  - Product dose omission in error [Unknown]

NARRATIVE: CASE EVENT DATE: 20230101
